FAERS Safety Report 8029390-8 (Version None)
Quarter: 2012Q1

REPORT INFORMATION
  Report Type: 
  Country: None (occurrence: None)
  Receive Date: 20120106
  Receipt Date: 20120103
  Transmission Date: 20120608
  Serious: Yes (Hospitalization)
  Sender: FDA-Public Use
  Company Number: US-ROCHE-1022742

PATIENT
  Age: 18 Month

DRUGS (8)
  1. ZANTAC [Concomitant]
     Indication: GASTROOESOPHAGEAL REFLUX DISEASE
  2. DESONIDE CREAM [Concomitant]
     Indication: DERMATITIS ATOPIC
  3. MIMYX CREAM [Concomitant]
     Indication: DERMATITIS ATOPIC
  4. OMALIZUMAB [Suspect]
     Indication: PRODUCT USED FOR UNKNOWN INDICATION
     Route: 064
  5. OMNICEF [Concomitant]
     Indication: OTITIS MEDIA
  6. BACTRIM [Concomitant]
     Indication: URINARY TRACT INFECTION
  7. AUGMENTIN '125' [Concomitant]
     Indication: OTITIS MEDIA
  8. ERYTHROMYCIN [Concomitant]
     Indication: CONJUNCTIVITIS

REACTIONS (5)
  - MATERNAL DRUGS AFFECTING FOETUS [None]
  - PLATELET COUNT INCREASED [None]
  - URINARY TRACT INFECTION [None]
  - VESICOURETERIC REFLUX [None]
  - GASTROOESOPHAGEAL REFLUX DISEASE [None]
